FAERS Safety Report 9068531 (Version 2)
Quarter: 2013Q3

REPORT INFORMATION
  Report Type: Report from Study
  Country: CO (occurrence: CO)
  Receive Date: 20130206
  Receipt Date: 20130902
  Transmission Date: 20140515
  Serious: Yes (Hospitalization)
  Sender: FDA-Public Use
  Company Number: PHHO2011CO05725

PATIENT
  Age: 72 Year
  Sex: Male
  Weight: 78 kg

DRUGS (10)
  1. ALISKIREN [Suspect]
     Indication: CARDIOVASCULAR DISORDER
     Route: 048
     Dates: start: 20100106, end: 20100202
  2. ALISKIREN [Suspect]
     Route: 048
     Dates: start: 20100203, end: 20110312
  3. ALISKIREN [Suspect]
     Dosage: NO TREATMENT
     Dates: start: 20110313, end: 20110327
  4. ALISKIREN [Suspect]
     Route: 048
     Dates: start: 20110328
  5. IRBESARTAN [Suspect]
     Indication: HYPERTENSION
     Dates: start: 20110308
  6. HYDROCHLOROTHIAZIDE SANDOZ [Suspect]
     Indication: HYPERTENSION
  7. NIFEDIPINE SANDOZ [Suspect]
     Indication: HYPERTENSION
  8. CLONIDINE [Suspect]
     Indication: HYPERTENSION
  9. FUROSEMIDE [Suspect]
     Indication: HYPERTENSION
  10. COAPROVEL [Suspect]
     Indication: HYPERTENSION

REACTIONS (1)
  - Transient ischaemic attack [Recovered/Resolved]
